FAERS Safety Report 5042573-4 (Version None)
Quarter: 2006Q3

REPORT INFORMATION
  Report Type: 
  Country: None (occurrence: None)
  Receive Date: 20060705
  Receipt Date: 20060601
  Transmission Date: 20061208
  Serious: Yes (Other)
  Sender: FDA-Public Use
  Company Number: US-AVENTIS-200615779GDDC

PATIENT
  Age: 58 Year
  Sex: Male
  Weight: 80.74 kg

DRUGS (10)
  1. TAXOTERE [Suspect]
     Indication: NON-SMALL CELL LUNG CANCER
     Route: 042
     Dates: start: 20060509, end: 20060509
  2. CARBOPLATIN [Suspect]
     Indication: NON-SMALL CELL LUNG CANCER
     Dosage: DOSE: AUC 6
     Route: 042
     Dates: start: 20060509, end: 20060509
  3. DEXAMETHASONE TAB [Suspect]
     Route: 048
     Dates: start: 20060508, end: 20060510
  4. SEROQUEL [Concomitant]
     Indication: INSOMNIA
     Dates: start: 20060504
  5. DIGOXIN [Concomitant]
     Dosage: DOSE: .25 MG
  6. CARDIZEM [Concomitant]
     Dosage: DOSE: 300 MG
  7. COUMADIN [Concomitant]
  8. NICODERM [Concomitant]
  9. PRILOSEC [Concomitant]
     Indication: ABDOMINAL DISCOMFORT
  10. DARVOCET [Concomitant]

REACTIONS (4)
  - PSYCHOMOTOR HYPERACTIVITY [None]
  - PSYCHOTIC DISORDER [None]
  - REFUSAL OF TREATMENT BY PATIENT [None]
  - SUICIDAL IDEATION [None]
